FAERS Safety Report 19845892 (Version 1)
Quarter: 2021Q3

REPORT INFORMATION
  Report Type: Spontaneous
  Country: US (occurrence: US)
  Receive Date: 20210916
  Receipt Date: 20210916
  Transmission Date: 20211014
  Serious: Yes (Hospitalization)
  Sender: FDA-Public Use
  Company Number: None

PATIENT
  Age: 54 Year
  Sex: Male

DRUGS (2)
  1. EPCLUSA [Suspect]
     Active Substance: SOFOSBUVIR\VELPATASVIR
     Indication: HEPATITIS C
     Dosage: ?          OTHER DOSE:400?100MG;?
     Route: 048
     Dates: start: 202108
  2. RIBAVIRIN TAB 200MG [Concomitant]
     Active Substance: RIBAVIRIN
     Dates: start: 20210828

REACTIONS (2)
  - Pruritus [None]
  - Haematochezia [None]

NARRATIVE: CASE EVENT DATE: 20210914
